FAERS Safety Report 4302283-5 (Version None)
Quarter: 2004Q1

REPORT INFORMATION
  Report Type: 
  Country: None (occurrence: None)
  Receive Date: 20040220
  Receipt Date: 20040206
  Transmission Date: 20041129
  Serious: Yes (Hospitalization)
  Sender: FDA-Public Use
  Company Number: 2004007847

PATIENT
  Age: 80 Year
  Sex: Female

DRUGS (3)
  1. NORVASC [Suspect]
     Indication: HYPERTENSION
     Dosage: 5 MG (DAILY), ORAL
     Route: 048
     Dates: start: 20031101, end: 20031201
  2. NORVASC [Suspect]
     Indication: MYOCARDIAL ISCHAEMIA
     Dosage: 5 MG (DAILY), ORAL
     Route: 048
     Dates: start: 20031101, end: 20031201
  3. BETA BLOCKING AGENTS [Concomitant]

REACTIONS (1)
  - ARTHRALGIA [None]
